FAERS Safety Report 24343169 (Version 1)
Quarter: 2024Q3

REPORT INFORMATION
  Report Type: Spontaneous
  Country: US (occurrence: US)
  Receive Date: 20240920
  Receipt Date: 20240920
  Transmission Date: 20241017
  Serious: Yes (Hospitalization)
  Sender: BRISTOL MYERS SQUIBB
  Company Number: US-BRISTOL-MYERS SQUIBB COMPANY-2024-147313

PATIENT
  Age: 70 Year
  Sex: Male
  Weight: 90.26 kg

DRUGS (1)
  1. REVLIMID [Suspect]
     Active Substance: LENALIDOMIDE
     Indication: Myelodysplastic syndrome
     Dosage: 1 CAPSULE PO DAILY FOR 7 DAYS ON AND THEN 7 DAYS OFF, THEN REPEAT
     Route: 048
     Dates: start: 20240210

REACTIONS (1)
  - Gallbladder disorder [Recovering/Resolving]

NARRATIVE: CASE EVENT DATE: 20240817
